FAERS Safety Report 11629483 (Version 1)
Quarter: 2015Q4

REPORT INFORMATION
  Report Type: Spontaneous
  Country: US (occurrence: None)
  Receive Date: 20151013
  Receipt Date: 20151013
  Transmission Date: 20160304
  Serious: Yes (Disabling)
  Sender: FDA-Public Use
  Company Number: None

PATIENT
  Age: 61 Year
  Sex: Female
  Weight: 62.6 kg

DRUGS (6)
  1. CARVEDILOL 3.125 MG [Suspect]
     Active Substance: CARVEDILOL
     Indication: HYPERTENSION
     Route: 048
     Dates: start: 20141203, end: 20150106
  2. MULTIVITAMINS [Concomitant]
     Active Substance: VITAMINS
  3. FISH OIL [Concomitant]
     Active Substance: FISH OIL
  4. CARVEDILOL 12.5 [Suspect]
     Active Substance: CARVEDILOL
     Indication: HYPERTENSION
     Route: 048
     Dates: start: 20150106, end: 20150307
  5. SYNTHROID [Concomitant]
     Active Substance: LEVOTHYROXINE SODIUM
  6. LISINOPRIL. [Concomitant]
     Active Substance: LISINOPRIL

REACTIONS (16)
  - Periorbital disorder [None]
  - Tinnitus [None]
  - Dermatomyositis [None]
  - Alopecia [None]
  - Systemic lupus erythematosus [None]
  - Pollakiuria [None]
  - Thirst [None]
  - Connective tissue disorder [None]
  - Blister [None]
  - Dry skin [None]
  - Eye swelling [None]
  - Erythema [None]
  - Weight decreased [None]
  - Eye disorder [None]
  - Muscle spasms [None]
  - Dysstasia [None]

NARRATIVE: CASE EVENT DATE: 20150218
